FAERS Safety Report 20425673 (Version 1)
Quarter: 2022Q1

REPORT INFORMATION
  Report Type: Report from Study
  Country: US (occurrence: US)
  Receive Date: 20220204
  Receipt Date: 20220204
  Transmission Date: 20220424
  Serious: Yes (Other)
  Sender: FDA-Public Use
  Company Number: US-JNJFOC-20220158672

PATIENT
  Sex: Female

DRUGS (20)
  1. SIMPONI [Suspect]
     Active Substance: GOLIMUMAB
     Indication: Plasma cell myeloma
     Route: 058
  2. METHYLPREDNISOLONE ACETATE [Concomitant]
     Active Substance: METHYLPREDNISOLONE ACETATE
  3. LINZESS [Concomitant]
     Active Substance: LINACLOTIDE
     Dosage: 290 MCG
  4. REGLAN [Concomitant]
     Active Substance: METOCLOPRAMIDE HYDROCHLORIDE
  5. ADVAIR HFA [Concomitant]
     Active Substance: FLUTICASONE PROPIONATE\SALMETEROL XINAFOATE
     Dosage: 100-50 MC
  6. ALBUTEROL SULFATE [Concomitant]
     Active Substance: ALBUTEROL SULFATE
     Dosage: 5MG/ML
  7. AMLODIPINE [Concomitant]
     Active Substance: AMLODIPINE BESYLATE
  8. ASPIRIN [Concomitant]
     Active Substance: ASPIRIN
  9. COENZYME Q10 [Concomitant]
     Active Substance: DIETARY SUPPLEMENT\UBIDECARENONE
  10. FOLIC ACID [Concomitant]
     Active Substance: FOLIC ACID
     Dosage: 800MCG
  11. HUMULIN R [Concomitant]
     Active Substance: INSULIN HUMAN
     Dosage: 500UNITS
  12. LASIX [Concomitant]
     Active Substance: FUROSEMIDE
  13. METHOCARBAMOL [Concomitant]
     Active Substance: METHOCARBAMOL
  14. PANTOPRAZOLE [Concomitant]
     Active Substance: PANTOPRAZOLE
  15. HYDROXYCHLOROQUINE DIPHOSPHATE [Concomitant]
     Active Substance: HYDROXYCHLOROQUINE DIPHOSPHATE
  16. POTASSIUM CHLORIDE [Concomitant]
     Active Substance: POTASSIUM CHLORIDE
     Dosage: 20 MEQ/1
  17. PREMARIN [Concomitant]
     Active Substance: ESTROGENS, CONJUGATED
  18. SIMVASTATIN [Concomitant]
     Active Substance: SIMVASTATIN
  19. VENTOLIN HFA [Concomitant]
     Active Substance: ALBUTEROL SULFATE
  20. ERGOCALCIFEROL [Concomitant]
     Active Substance: ERGOCALCIFEROL
     Dosage: 50MCG

REACTIONS (3)
  - COVID-19 pneumonia [Not Recovered/Not Resolved]
  - Off label use [Unknown]
  - Product use in unapproved indication [Unknown]
